FAERS Safety Report 25313119 (Version 1)
Quarter: 2025Q2

REPORT INFORMATION
  Report Type: Spontaneous
  Country: CH (occurrence: CH)
  Receive Date: 20250514
  Receipt Date: 20250514
  Transmission Date: 20250716
  Serious: Yes (Other)
  Sender: NOVARTIS
  Company Number: CH-002147023-NVSC2025CH049262

PATIENT
  Age: 37 Year
  Sex: Female

DRUGS (1)
  1. ILARIS [Suspect]
     Active Substance: CANAKINUMAB
     Indication: Still^s disease
     Route: 058
     Dates: start: 202501, end: 202501

REACTIONS (3)
  - Pleurisy [Recovered/Resolved]
  - Skin reaction [Recovering/Resolving]
  - Vomiting [Recovered/Resolved]
